FAERS Safety Report 4340287-7 (Version None)
Quarter: 2004Q2

REPORT INFORMATION
  Report Type: 
  Country: None (occurrence: None)
  Receive Date: 20040412
  Receipt Date: 20040329
  Transmission Date: 20050107
  Serious: Yes (Other)
  Sender: FDA-Public Use
  Company Number: 2004017494

PATIENT
  Age: 77 Year
  Sex: Female

DRUGS (3)
  1. DIFLUCAN [Suspect]
     Indication: BLOOD BETA-D-GLUCAN ABNORMAL
     Dosage: 200 MG INTRAVENOUS
     Route: 042
     Dates: start: 20040301, end: 20040305
  2. DIFLUCAN [Suspect]
     Indication: CANDIDIASIS
     Dosage: 200 MG INTRAVENOUS
     Route: 042
     Dates: start: 20040301, end: 20040305
  3. TIENAM (IMIPENEM, CILASTATIN) [Concomitant]

REACTIONS (2)
  - HEPATIC FUNCTION ABNORMAL [None]
  - MYOCARDIAL INFARCTION [None]
